FAERS Safety Report 21160820 (Version 1)
Quarter: 2022Q3

REPORT INFORMATION
  Report Type: Spontaneous
  Country: US (occurrence: None)
  Receive Date: 20220801
  Receipt Date: 20220801
  Transmission Date: 20221026
  Serious: Yes (Other)
  Sender: FDA-Public Use
  Company Number: None

PATIENT
  Age: 49 Year
  Sex: Female
  Weight: 51.75 kg

DRUGS (2)
  1. HYDROCORTISONE\HYDROQUINONE\KOJIC ACID\NIACINAMIDE [Suspect]
     Active Substance: HYDROCORTISONE\HYDROQUINONE\KOJIC ACID\NIACINAMIDE
     Indication: Skin discolouration
     Dosage: OTHER QUANTITY : 1 CONTAINER;?FREQUENCY : DAILY;?
     Route: 061
     Dates: start: 20220711, end: 20220716
  2. UNSPECIFIED INGREDIENT [Concomitant]
     Active Substance: UNSPECIFIED INGREDIENT

REACTIONS (1)
  - Drug hypersensitivity [None]

NARRATIVE: CASE EVENT DATE: 20220716
